FAERS Safety Report 9682611 (Version 1)
Quarter: 2013Q4

REPORT INFORMATION
  Report Type: Spontaneous
  Country: DE (occurrence: DE)
  Receive Date: 20131017
  Receipt Date: 20131017
  Transmission Date: 20140711
  Serious: Yes (Other)
  Sender: FDA-Public Use
  Company Number: DE-DRREDDYS-GER/GER/13/0034912

PATIENT
  Age: 40 Year
  Sex: Female
  Weight: 69.5 kg

DRUGS (4)
  1. METOPROLOL [Suspect]
     Indication: PRE-ECLAMPSIA
     Route: 048
  2. VALPROIC ACID [Suspect]
     Indication: BIPOLAR DISORDER
     Route: 048
  3. SEROQUEL [Suspect]
     Indication: BIPOLAR DISORDER
     Route: 048
  4. FOLIC ACID [Concomitant]
     Indication: PROPHYLAXIS OF NEURAL TUBE DEFECT
     Route: 048
     Dates: start: 20080726, end: 20081126

REACTIONS (5)
  - Pre-eclampsia [Unknown]
  - Gestational diabetes [Unknown]
  - Caesarean section [Unknown]
  - Breech presentation [Unknown]
  - Exposure during pregnancy [Unknown]
